FAERS Safety Report 7556275-3 (Version None)
Quarter: 2011Q2

REPORT INFORMATION
  Report Type: 
  Country: None (occurrence: None)
  Receive Date: 20110620
  Receipt Date: 20110613
  Transmission Date: 20111010
  Serious: Yes (Hospitalization, Congenital Anomaly)
  Sender: FDA-Public Use
  Company Number: FR-JNJFOC-20100903775

PATIENT
  Sex: Female

DRUGS (5)
  1. TRUVADA [Concomitant]
     Route: 064
  2. PREZISTA [Suspect]
     Indication: DRUG EXPOSURE DURING PREGNANCY
     Route: 064
  3. DEPAKENE [Suspect]
     Indication: DRUG EXPOSURE DURING PREGNANCY
     Route: 064
  4. CLONAZEPAM [Concomitant]
     Route: 064
     Dates: start: 20100103, end: 20100103
  5. NORVIR [Concomitant]
     Route: 064

REACTIONS (4)
  - HEART DISEASE CONGENITAL [None]
  - PREMATURE BABY [None]
  - EPILEPSY [None]
  - INTRAVENTRICULAR HAEMORRHAGE [None]
